FAERS Safety Report 6634177-4 (Version None)
Quarter: 2010Q1

REPORT INFORMATION
  Report Type: 
  Country: None (occurrence: None)
  Receive Date: 20100309
  Receipt Date: 20100224
  Transmission Date: 20100710
  Serious: Yes (Hospitalization)
  Sender: FDA-Public Use
  Company Number: DSJ-2010-02503

PATIENT
  Age: 69 Year
  Sex: Male
  Weight: 60.2 kg

DRUGS (25)
  1. OLMESARTAN MEDOXOMIL [Suspect]
     Indication: HYPERTENSION
     Dosage: 40 MG (40 IMG, 1 IN 1 D), PER ORAL
     Route: 048
     Dates: start: 20090908, end: 20100204
  2. CARVEDILOL [Concomitant]
  3. ACECOL (TEMOCAPRIL HYDROCHLORIDE) (TEMOCAPRIL HYDROCHLORIDE) [Concomitant]
  4. ALFAROL (ALFACALCIDOL (ALFACALCIDOL) [Concomitant]
  5. RENAGEL (SEVELAMER HYDROCHLORIDE) (SEVELAMER HYDROCHLORIDE) [Concomitant]
  6. ARGAMATE (CALCIUM POLYSTYRENE SULFONATE) (CALCIUM POLYSTYRENE SULFONAT [Concomitant]
  7. SEISHOKU (SODIUM CHLORIDE) (SODIUM CHLORIDE) [Concomitant]
  8. SEFMAZON (CEFAZOLIN SODIUM) (CEFAZOLIN SODIUM) [Concomitant]
  9. SOLITA-T NO. 4 (ELECTROLYTES NOS) (ELECTROLYTES NOS) [Concomitant]
  10. ADONA (CARBAZOCHROME SODIUM SULFONATE) (CARBAZOCHROME SODIUM SULFONATE [Concomitant]
  11. TRANEXAMIC ACID (TRANEXAMIC ACID) (TRANEXAMIC ACID) [Concomitant]
  12. RADISTMIN (NICARDIPINE HYDROCHLORIDE) (NICARDIPINE HYDROCHLORIDE) [Concomitant]
  13. ROPION (FLURBIPROFEN AXETIL) (FLURBIPROFEN AXETIL) [Concomitant]
  14. VITAMEDIN (PYRIDOXINE HYDROCHLORIDE, CYANOCOBALAMIN, BENFOTIAMINE) (PY [Concomitant]
  15. ONOACT (LANDIOLOL HYDROCHLORIDE) (LANDIOLOL HYDROCHLORIDE) [Concomitant]
  16. TAMBOCOR [Concomitant]
  17. TZ (GLUCOSE) (GLUCOSE) [Concomitant]
  18. ATARAX-P (HYDROXYZINE HYDROCHLORIDE) (HYDROXYZINE HYDROCHLORIDE) [Concomitant]
  19. GRAN (FILGRASTIM) (FILGRASTIM) [Concomitant]
  20. MEROPEN (MEROPENEM) (MEROPENEM) [Concomitant]
  21. FENTANYL [Concomitant]
  22. ULTIVA (REMIFENTANIL HYDROCHLORIDE) (REMIFENTANIL HYDROCHLORIDE) [Concomitant]
  23. ISOZOL (THIAMYLAL SODIUM) (THIAMYLAL SODIUM) [Concomitant]
  24. NICARDIPINE HYDROCHLORIDE [Concomitant]
  25. ATROPINE SULFATE [Concomitant]

REACTIONS (3)
  - AGRANULOCYTOSIS [None]
  - BLOOD PRESSURE INCREASED [None]
  - HAEMODIALYSIS [None]
